FAERS Safety Report 11411925 (Version 1)
Quarter: 2015Q3

REPORT INFORMATION
  Report Type: Spontaneous
  Country: FR (occurrence: None)
  Receive Date: 20150811
  Receipt Date: 20150811
  Transmission Date: 20151125
  Serious: Yes (Hospitalization)
  Sender: FDA-Public Use
  Company Number: CC400265837

PATIENT
  Age: 50 Year
  Sex: Male

DRUGS (15)
  1. MIDAZOLAM [Concomitant]
     Active Substance: MIDAZOLAM\MIDAZOLAM HYDROCHLORIDE
  2. ALPRAZOLAM. [Concomitant]
     Active Substance: ALPRAZOLAM
  3. NEFOPAM HYDROCHLORIDE [Concomitant]
     Active Substance: NEFOPAM HYDROCHLORIDE
  4. NICOTINE (PATCH) [Concomitant]
  5. TRANEXAMIC ACID. [Concomitant]
     Active Substance: TRANEXAMIC ACID
  6. KETOPROFEN. [Concomitant]
     Active Substance: KETOPROFEN
  7. IBUPROFEN. [Concomitant]
     Active Substance: IBUPROFEN
  8. CISATRACURIUM. [Concomitant]
     Active Substance: CISATRACURIUM
  9. MORPHINE [Concomitant]
     Active Substance: MORPHINE
  10. EPHEDRINE. [Concomitant]
     Active Substance: EPHEDRINE
  11. 6% HYDROXYETHYL STARCH (RESTORVOL) [Suspect]
     Active Substance: HETASTARCH\SODIUM CHLORIDE
     Dates: start: 20150629
  12. ONDANSETRON [Concomitant]
     Active Substance: ONDANSETRON
  13. CEFAZOLIN [Concomitant]
     Active Substance: CEFAZOLIN
  14. PROPOFOL. [Concomitant]
     Active Substance: PROPOFOL
  15. SUFENTANIL [Concomitant]
     Active Substance: SUFENTANIL

REACTIONS (4)
  - Hyperlipidaemia [None]
  - Pancreatitis [None]
  - Haemolytic anaemia [None]
  - Creatinine renal clearance decreased [None]

NARRATIVE: CASE EVENT DATE: 20150701
